FAERS Safety Report 25165769 (Version 1)
Quarter: 2025Q2

REPORT INFORMATION
  Report Type: Spontaneous
  Country: US (occurrence: US)
  Receive Date: 20250407
  Receipt Date: 20250407
  Transmission Date: 20250716
  Serious: No
  Sender: BRISTOL MYERS SQUIBB
  Company Number: US-BRISTOL-MYERS SQUIBB COMPANY-2025-047114

PATIENT
  Age: 66 Year
  Sex: Female

DRUGS (1)
  1. ORENCIA [Suspect]
     Active Substance: ABATACEPT
     Indication: Rheumatoid arthritis
     Dosage: DOSE: 44
     Route: 058
     Dates: start: 202405

REACTIONS (5)
  - Device use error [Unknown]
  - Product storage error [Unknown]
  - Incorrect dose administered [Unknown]
  - Adverse drug reaction [Unknown]
  - Device malfunction [Unknown]

NARRATIVE: CASE EVENT DATE: 20250325
